FAERS Safety Report 5645865-0 (Version None)
Quarter: 2008Q1

REPORT INFORMATION
  Report Type: 
  Country: None (occurrence: None)
  Receive Date: 20080131
  Receipt Date: 20071213
  Transmission Date: 20080703
  Serious: No
  Sender: FDA-Public Use
  Company Number: 163-21880-07120767

PATIENT
  Age: 58 Year
  Sex: Female

DRUGS (2)
  1. REVLIMID [Suspect]
     Indication: MULTIPLE MYELOMA
     Dosage: 10 MG, DAILY X 21 DAYS, 7 DAYS OFF, ORAL; 10MG-15MG-20MG-25MG, DAILY, ORAL
     Route: 048
     Dates: start: 20060705, end: 20061101
  2. REVLIMID [Suspect]
     Indication: MULTIPLE MYELOMA
     Dosage: 10 MG, DAILY X 21 DAYS, 7 DAYS OFF, ORAL; 10MG-15MG-20MG-25MG, DAILY, ORAL
     Route: 048
     Dates: start: 20070717

REACTIONS (2)
  - DRY SKIN [None]
  - FATIGUE [None]
